FAERS Safety Report 19379348 (Version 1)
Quarter: 2021Q2

REPORT INFORMATION
  Report Type: Spontaneous
  Country: FR (occurrence: FR)
  Receive Date: 20210607
  Receipt Date: 20210607
  Transmission Date: 20210717
  Serious: Yes (Hospitalization, Other)
  Sender: FDA-Public Use
  Company Number: FR-SA-2021SA187586

PATIENT
  Age: 46 Year

DRUGS (6)
  1. DUPILUMAB [Suspect]
     Active Substance: DUPILUMAB
     Indication: BRONCHOPULMONARY ASPERGILLOSIS
     Dosage: 300 MG
     Dates: start: 20201231
  2. VENTOLIN HFA [Concomitant]
     Active Substance: ALBUTEROL SULFATE
     Indication: BRONCHOPULMONARY ASPERGILLOSIS
     Dosage: UNK
     Dates: end: 202012
  3. SOLUPRED [METHYLPREDNISOLONE] [Concomitant]
     Active Substance: METHYLPREDNISOLONE
     Indication: BRONCHOPULMONARY ASPERGILLOSIS
     Dosage: 0.5 MG/KG
  4. DUPILUMAB [Suspect]
     Active Substance: DUPILUMAB
     Indication: ASTHMA
     Dosage: 300 MG
     Dates: start: 20201215, end: 20201215
  5. SOLUPRED [METHYLPREDNISOLONE] [Concomitant]
     Active Substance: METHYLPREDNISOLONE
     Dosage: 1 MG/KG
  6. XOLAIR [Concomitant]
     Active Substance: OMALIZUMAB
     Indication: BRONCHOPULMONARY ASPERGILLOSIS

REACTIONS (5)
  - Off label use [Unknown]
  - Urticaria [Unknown]
  - Loss of consciousness [Recovered/Resolved]
  - Tinnitus [Unknown]
  - Dizziness [Unknown]

NARRATIVE: CASE EVENT DATE: 20201215
